FAERS Safety Report 12480794 (Version 2)
Quarter: 2016Q2

REPORT INFORMATION
  Report Type: Spontaneous
  Country: US (occurrence: US)
  Receive Date: 20160620
  Receipt Date: 20160623
  Transmission Date: 20160815
  Serious: Yes (Other)
  Sender: FDA-Public Use
  Company Number: US-PFIZER INC-2016305364

PATIENT
  Sex: Female

DRUGS (2)
  1. NEURONTIN [Suspect]
     Active Substance: GABAPENTIN
     Indication: AUTONOMIC NEUROPATHY
     Dosage: 3000 MG, UNK
  2. LYRICA [Suspect]
     Active Substance: PREGABALIN
     Indication: AUTONOMIC NEUROPATHY
     Dosage: UNK

REACTIONS (5)
  - Sexual dysfunction [Unknown]
  - Drug ineffective for unapproved indication [Unknown]
  - Depressed mood [Unknown]
  - Neuropathic arthropathy [Unknown]
  - Weight increased [Unknown]
